FAERS Safety Report 5727907-7 (Version None)
Quarter: 2008Q2

REPORT INFORMATION
  Report Type: 
  Country: None (occurrence: None)
  Receive Date: 20080505
  Receipt Date: 20080423
  Transmission Date: 20081010
  Serious: Yes (Other)
  Sender: FDA-Public Use
  Company Number: FR-PFIZER INC-2007105204

PATIENT
  Sex: Male
  Weight: 132 kg

DRUGS (3)
  1. CHANTIX [Suspect]
     Indication: SMOKING CESSATION THERAPY
     Route: 048
     Dates: start: 20080101, end: 20080212
  2. AMLODIPINE [Concomitant]
     Indication: HYPERTENSION
  3. VALSARTAN AND HYDROCHLOROTHIAZIDE [Concomitant]
     Indication: HYPERTENSION

REACTIONS (4)
  - HOMICIDAL IDEATION [None]
  - NERVOUSNESS [None]
  - NIGHTMARE [None]
  - SOMNAMBULISM [None]
